FAERS Safety Report 11685632 (Version 2)
Quarter: 2015Q4

REPORT INFORMATION
  Report Type: Spontaneous
  Country: TR (occurrence: TR)
  Receive Date: 20151030
  Receipt Date: 20151204
  Transmission Date: 20160304
  Serious: Yes (Hospitalization)
  Sender: FDA-Public Use
  Company Number: TR-ACTAVIS-2015-19729

PATIENT
  Age: 12 Year
  Sex: Male

DRUGS (3)
  1. METHYLPHENIDATE HYDROCHLORIDE (AELLC) [Suspect]
     Active Substance: METHYLPHENIDATE HYDROCHLORIDE
     Indication: ATTENTION DEFICIT/HYPERACTIVITY DISORDER
     Dosage: 360 MG, TOTAL (10 TABLETS OF 36 MG)
     Route: 048
  2. METHYLPHENIDATE HYDROCHLORIDE (AELLC) [Suspect]
     Active Substance: METHYLPHENIDATE HYDROCHLORIDE
     Dosage: 27 MG, UNKNOWN
     Route: 065
  3. METHYLPHENIDATE HYDROCHLORIDE (AELLC) [Suspect]
     Active Substance: METHYLPHENIDATE HYDROCHLORIDE
     Dosage: 36 MG, SINGLE
     Route: 048

REACTIONS (5)
  - Intentional overdose [Recovered/Resolved]
  - Heart rate increased [Recovered/Resolved]
  - Suicide attempt [Recovered/Resolved]
  - Irritability [Recovered/Resolved]
  - Agitation [Recovered/Resolved]
